FAERS Safety Report 18599916 (Version 1)
Quarter: 2020Q4

REPORT INFORMATION
  Report Type: Spontaneous
  Country: US (occurrence: US)
  Receive Date: 20201209
  Receipt Date: 20201209
  Transmission Date: 20210114
  Serious: No
  Sender: FDA-Public Use
  Company Number: None

PATIENT
  Age: 82 Year
  Sex: Female

DRUGS (1)
  1. POMALYST [Suspect]
     Active Substance: POMALIDOMIDE
     Indication: AMYLOIDOSIS
     Route: 048
     Dates: start: 20201008, end: 20201022

REACTIONS (6)
  - Syncope [None]
  - Fatigue [None]
  - Asthenia [None]
  - Therapy cessation [None]
  - Breast discolouration [None]
  - Drug intolerance [None]

NARRATIVE: CASE EVENT DATE: 20201023
